FAERS Safety Report 5217580-9 (Version None)
Quarter: 2007Q1

REPORT INFORMATION
  Report Type: 
  Country: None (occurrence: None)
  Receive Date: 20070124
  Receipt Date: 20060413
  Transmission Date: 20070707
  Serious: No
  Sender: FDA-Public Use
  Company Number: US-GLAXOSMITHKLINE-A0601658A

PATIENT
  Age: 74 Year
  Sex: Female

DRUGS (10)
  1. PAXIL CR [Suspect]
     Indication: FIBROMYALGIA
     Dosage: 12.5MG PER DAY
     Route: 048
     Dates: start: 20060328
  2. PAXIL [Suspect]
     Indication: FIBROMYALGIA
     Dosage: 10MG PER DAY
     Route: 048
     Dates: start: 20060101, end: 20060327
  3. SYNTHROID [Concomitant]
  4. ZANTAC [Concomitant]
  5. MICROZIDE [Concomitant]
  6. LIPITOR [Concomitant]
  7. CARDIZEM CD [Concomitant]
  8. DIOZINE [Concomitant]
  9. DARVOCET [Concomitant]
  10. ACTONEL [Concomitant]

REACTIONS (6)
  - HEADACHE [None]
  - HEART RATE INCREASED [None]
  - NAUSEA [None]
  - PHARYNGOLARYNGEAL PAIN [None]
  - RESTLESSNESS [None]
  - SOMNOLENCE [None]
